FAERS Safety Report 10501540 (Version 2)
Quarter: 2014Q4

REPORT INFORMATION
  Report Type: Report from Study
  Country: US (occurrence: US)
  Receive Date: 20141007
  Receipt Date: 20141106
  Transmission Date: 20150528
  Serious: Yes (Other)
  Sender: FDA-Public Use
  Company Number: US-ABBVIE-14K-163-1290986-00

PATIENT
  Age: 52 Year
  Sex: Female
  Weight: 54.48 kg

DRUGS (3)
  1. HUMIRA [Suspect]
     Active Substance: ADALIMUMAB
     Indication: COLITIS
     Route: 065
     Dates: start: 20140122, end: 201407
  2. HUMIRA [Suspect]
     Active Substance: ADALIMUMAB
     Indication: PSORIATIC ARTHROPATHY
     Route: 065
     Dates: start: 201307
  3. HUMIRA [Suspect]
     Active Substance: ADALIMUMAB
     Route: 065
     Dates: end: 20140903

REACTIONS (11)
  - Gait disturbance [Recovered/Resolved]
  - Weight decreased [Recovering/Resolving]
  - Tremor [Recovered/Resolved]
  - Gastritis [Not Recovered/Not Resolved]
  - Muscular weakness [Recovering/Resolving]
  - Muscle tightness [Unknown]
  - Myalgia [Recovered/Resolved]
  - Histone antibody positive [Recovering/Resolving]
  - Lupus-like syndrome [Recovered/Resolved with Sequelae]
  - Nausea [Not Recovered/Not Resolved]
  - Chorea [Recovering/Resolving]

NARRATIVE: CASE EVENT DATE: 2014
